APPROVED DRUG PRODUCT: LOPRESSOR
Active Ingredient: METOPROLOL TARTRATE
Strength: 100MG
Dosage Form/Route: TABLET;ORAL
Application: N017963 | Product #002 | TE Code: AB
Applicant: VALIDUS PHARMACEUTICALS LLC
Approved: Approved Prior to Jan 1, 1982 | RLD: Yes | RS: No | Type: RX